FAERS Safety Report 8114902-6 (Version None)
Quarter: 2012Q1

REPORT INFORMATION
  Report Type: 
  Country: None (occurrence: None)
  Receive Date: 20120206
  Receipt Date: 20111214
  Transmission Date: 20120608
  Serious: No
  Sender: FDA-Public Use
  Company Number: CA-JNJFOC-20120111364

PATIENT
  Sex: Male
  Weight: 72 kg

DRUGS (12)
  1. LISOPRIL [Concomitant]
     Route: 065
  2. MESALAMINE [Concomitant]
     Route: 065
  3. DILTIAZEM HCL [Concomitant]
     Route: 065
  4. SPIRIVA [Concomitant]
     Route: 065
  5. ADVAIR DISKUS 100/50 [Concomitant]
     Route: 065
  6. INSULIN [Concomitant]
     Route: 065
  7. METOPROLOL SUCCINATE [Concomitant]
     Route: 065
  8. LIPITOR [Concomitant]
     Route: 065
  9. IMURAN [Concomitant]
     Route: 065
  10. EZETIMIBE [Concomitant]
     Route: 065
  11. REMICADE [Suspect]
     Indication: CROHN'S DISEASE
     Route: 042
     Dates: start: 20100611
  12. UNKNOWN MEDICATION [Concomitant]
     Route: 065

REACTIONS (1)
  - HERPES ZOSTER [None]
